FAERS Safety Report 15475131 (Version 1)
Quarter: 2018Q4

REPORT INFORMATION
  Report Type: Spontaneous
  Country: US (occurrence: US)
  Receive Date: 20181008
  Receipt Date: 20181008
  Transmission Date: 20190205
  Serious: No
  Sender: FDA-Public Use
  Company Number: US-SA-2018SA272773

PATIENT
  Age: 67 Year
  Sex: Male

DRUGS (6)
  1. MULTAQ [Concomitant]
     Active Substance: DRONEDARONE
     Dosage: UNK, UNK
  2. IRBESARTAN. [Suspect]
     Active Substance: IRBESARTAN
     Dosage: UNK UNK, UNK
  3. PRALUENT [Suspect]
     Active Substance: ALIROCUMAB
     Indication: BLOOD CHOLESTEROL INCREASED
     Dosage: 75 MG, QOW
     Route: 065
  4. ADVAIR HFA [Concomitant]
     Active Substance: FLUTICASONE PROPIONATE\SALMETEROL XINAFOATE
     Dosage: UNK, UNK
  5. AVAPRO [Concomitant]
     Active Substance: IRBESARTAN
     Dosage: UNK, UNK
  6. CRESTOR [Suspect]
     Active Substance: ROSUVASTATIN CALCIUM
     Dosage: 5 MG, UNK
     Route: 065

REACTIONS (4)
  - Rhinorrhoea [Unknown]
  - Blood creatine phosphokinase increased [Unknown]
  - Injection site haematoma [Unknown]
  - Nasal congestion [Unknown]

NARRATIVE: CASE EVENT DATE: 20180925
